FAERS Safety Report 7019292-8 (Version None)
Quarter: 2010Q3

REPORT INFORMATION
  Report Type: 
  Country: None (occurrence: None)
  Receive Date: 20100923
  Receipt Date: 20100913
  Transmission Date: 20110219
  Serious: Yes (Other)
  Sender: FDA-Public Use
  Company Number: 694146

PATIENT
  Age: 52 Year
  Sex: Male

DRUGS (3)
  1. LEUCOVORIN CALCIUM [Suspect]
     Indication: PRODUCT USED FOR UNKNOWN INDICATION
     Dosage: INTRAVENOUS, INTRAVENOUS
     Route: 042
     Dates: start: 20100809, end: 20100809
  2. ELOXATIN [Suspect]
     Indication: PRODUCT USED FOR UNKNOWN INDICATION
     Dosage: 85 MG/SQUARE METER, INTRAVENOUS;  85 MG/SQUARE METER, INTRAVENOUS;
     Dates: start: 20100809, end: 20100809
  3. FLUOROURACIL [Suspect]
     Indication: PRODUCT USED FOR UNKNOWN INDICATION
     Dosage: INTRAVENOUS
     Route: 042
     Dates: start: 20100809, end: 20100809

REACTIONS (3)
  - DYSPNOEA [None]
  - HYPERHIDROSIS [None]
  - URTICARIA [None]
